FAERS Safety Report 20360069 (Version 1)
Quarter: 2022Q1

REPORT INFORMATION
  Report Type: Other
  Country: US (occurrence: None)
  Receive Date: 20220121
  Receipt Date: 20220121
  Transmission Date: 20220424
  Serious: Yes (Other)
  Sender: FDA-Public Use
  Company Number: US-ROCHE-2999271

PATIENT
  Age: 47 Year
  Sex: Male
  Weight: 91.708 kg

DRUGS (3)
  1. OCREVUS [Suspect]
     Active Substance: OCRELIZUMAB
     Indication: Relapsing multiple sclerosis
     Dosage: LAST OCREVUS INFUSION: 10-DEC-2021
     Route: 042
  2. OCREVUS [Suspect]
     Active Substance: OCRELIZUMAB
     Route: 065
     Dates: start: 201906
  3. PFIZER-BIONTECH COVID-19 VACCINE [Concomitant]
     Active Substance: TOZINAMERAN
     Dosage: 26-MAR-2021, 23-APR-2021, AND 09-NOV-2021.
     Dates: start: 20210326

REACTIONS (7)
  - COVID-19 pneumonia [Recovering/Resolving]
  - Joint hyperextension [Unknown]
  - Muscular weakness [Unknown]
  - Hypertension [Unknown]
  - Muscle spasms [Unknown]
  - Mucosal dryness [Unknown]
  - Affective disorder [Unknown]

NARRATIVE: CASE EVENT DATE: 20210115
